FAERS Safety Report 13739425 (Version 1)
Quarter: 2017Q3

REPORT INFORMATION
  Report Type: Spontaneous
  Country: US (occurrence: US)
  Receive Date: 20170710
  Receipt Date: 20170710
  Transmission Date: 20171127
  Serious: Yes (Hospitalization)
  Sender: FDA-Public Use
  Company Number: US-ZYDUS-015711

PATIENT
  Age: 57 Year
  Sex: Male

DRUGS (3)
  1. BACLOFEN. [Concomitant]
     Active Substance: BACLOFEN
     Indication: MUSCLE SPASTICITY
     Route: 048
  2. PRIMIDONE. [Concomitant]
     Active Substance: PRIMIDONE
     Indication: SEIZURE
     Route: 048
  3. MORPHINE/MORPHINE HYDROCHLORIDE/MORPHINE SULFATE/MORPHINE TARTRATE [Suspect]
     Active Substance: MORPHINE\MORPHINE HYDROCHLORIDE\MORPHINE SULFATE\MORPHINE TARTRATE
     Indication: BACK PAIN
     Route: 037

REACTIONS (8)
  - Hallucination, auditory [Recovered/Resolved]
  - Thinking abnormal [Recovered/Resolved]
  - Drug withdrawal syndrome [Recovered/Resolved]
  - Delusional perception [Recovered/Resolved]
  - Hallucination, visual [Recovered/Resolved]
  - Device malfunction [Unknown]
  - Psychotic disorder [Recovered/Resolved]
  - Paranoia [Recovered/Resolved]
